FAERS Safety Report 10236267 (Version 1)
Quarter: 2014Q2

REPORT INFORMATION
  Report Type: Spontaneous
  Country: DE (occurrence: DE)
  Receive Date: 20140613
  Receipt Date: 20140613
  Transmission Date: 20141212
  Serious: Yes (Hospitalization)
  Sender: FDA-Public Use
  Company Number: DE-ELI_LILLY_AND_COMPANY-DE201406001132

PATIENT
  Age: 70 Year
  Sex: Female

DRUGS (10)
  1. ZYPREXA [Suspect]
     Indication: PRODUCT USED FOR UNKNOWN INDICATION
     Dosage: 15 MG, QD
     Route: 048
     Dates: start: 2013, end: 20130828
  2. ZYPREXA [Suspect]
     Dosage: 10 MG, QD
     Route: 048
     Dates: start: 20130829
  3. ERGENYL CHRONO [Suspect]
     Indication: MANIA
     Dosage: 500 MG, QD
     Route: 048
     Dates: start: 20130723, end: 20130724
  4. ERGENYL CHRONO [Suspect]
     Dosage: 1000 MG, QD
     Route: 048
     Dates: start: 20130725, end: 20130728
  5. ERGENYL CHRONO [Suspect]
     Dosage: 1500 MG, QD
     Route: 048
     Dates: start: 20130729, end: 20130805
  6. ERGENYL CHRONO [Suspect]
     Dosage: 1100 MG, QD
     Route: 048
     Dates: start: 20130806, end: 20130930
  7. PIPAMPERON [Concomitant]
     Indication: PRODUCT USED FOR UNKNOWN INDICATION
     Dosage: 60 MG, QD
     Route: 048
     Dates: start: 2013
  8. L-THYROXIN [Concomitant]
     Indication: PRODUCT USED FOR UNKNOWN INDICATION
     Dosage: 125 UG, QD
     Route: 048
  9. PANTOPRAZOL [Concomitant]
     Indication: PRODUCT USED FOR UNKNOWN INDICATION
     Dosage: 20 MG, QD
     Route: 048
  10. CARVEDILOL [Concomitant]
     Indication: PRODUCT USED FOR UNKNOWN INDICATION
     Dosage: 25 MG, QD
     Route: 048

REACTIONS (2)
  - Thrombocytopenia [Recovered/Resolved]
  - Depressive symptom [Unknown]
